FAERS Safety Report 24008949 (Version 2)
Quarter: 2024Q3

REPORT INFORMATION
  Report Type: Report from Study
  Country: IT (occurrence: IT)
  Receive Date: 20240625
  Receipt Date: 20240712
  Transmission Date: 20241016
  Serious: Yes (Other)
  Sender: SERVIER
  Company Number: None

PATIENT

DRUGS (4)
  1. PEGASPARGASE [Suspect]
     Active Substance: PEGASPARGASE
     Indication: B-cell type acute leukaemia
     Dosage: 2110,00 IU INFUSION IN 120 MIN.
     Route: 042
     Dates: start: 20240502, end: 20240502
  2. METHOTREXATE SODIUM [Suspect]
     Active Substance: METHOTREXATE SODIUM
     Indication: B-cell type acute leukaemia
     Dosage: 420 MG INFUSION IN 30 MIN. + 3790 MG INFUSION IN 1410 MIN.
     Route: 042
     Dates: start: 20240425, end: 20240426
  3. DAUNORUBICIN HYDROCHLORIDE [Suspect]
     Active Substance: DAUNORUBICIN HYDROCHLORIDE
     Indication: B-cell type acute leukaemia
     Dosage: 25 MG INFUSION IN 1440 MINUTES
     Route: 042
     Dates: start: 20240427, end: 20240427
  4. IFOSFAMIDE [Suspect]
     Active Substance: IFOSFAMIDE
     Indication: B-cell type acute leukaemia
     Dosage: 675 MG EVERY 12 HOURS FOR A TOTAL OF 5 SUMMATIONS
     Route: 042
     Dates: start: 20240427, end: 20240429

REACTIONS (3)
  - Leukopenia [Recovered/Resolved]
  - Thrombocytopenia [Recovered/Resolved]
  - Stomatitis [Recovered/Resolved]

NARRATIVE: CASE EVENT DATE: 20240505
